FAERS Safety Report 21993092 (Version 7)
Quarter: 2023Q2

REPORT INFORMATION
  Report Type: Report from Study
  Country: US (occurrence: US)
  Receive Date: 20230215
  Receipt Date: 20230617
  Transmission Date: 20230721
  Serious: Yes (Other)
  Sender: FDA-Public Use
  Company Number: US-ARGENX-2023-ARGX-US000434

PATIENT
  Sex: Female

DRUGS (1)
  1. VYVGART [Suspect]
     Active Substance: EFGARTIGIMOD ALFA-FCAB
     Indication: Myasthenia gravis
     Dosage: 918 MG, ONCE WEEKLY FOR 4 WEEK
     Route: 042
     Dates: start: 20230131

REACTIONS (16)
  - Fatigue [Recovered/Resolved]
  - Contusion [Unknown]
  - Blood blister [Unknown]
  - Somnolence [Unknown]
  - Vaginal haemorrhage [Recovering/Resolving]
  - Hypersomnia [Unknown]
  - Peripheral swelling [Unknown]
  - Skin haemorrhage [Unknown]
  - Brain fog [Unknown]
  - Weight increased [Unknown]
  - Condition aggravated [Unknown]
  - Choking [Unknown]
  - Asthenia [Unknown]
  - Contusion [Not Recovered/Not Resolved]
  - Skin discolouration [Not Recovered/Not Resolved]
  - Arthralgia [Not Recovered/Not Resolved]

NARRATIVE: CASE EVENT DATE: 20230101
